FAERS Safety Report 13788056 (Version 1)
Quarter: 2017Q3

REPORT INFORMATION
  Report Type: Spontaneous
  Country: US (occurrence: US)
  Receive Date: 20170725
  Receipt Date: 20170725
  Transmission Date: 20171127
  Serious: No
  Sender: FDA-Public Use
  Company Number: US-UNITED THERAPEUTICS-UNT-2017-002208

PATIENT
  Sex: Female

DRUGS (2)
  1. REMODULIN [Suspect]
     Active Substance: TREPROSTINIL
     Indication: PULMONARY ARTERIAL HYPERTENSION
     Dosage: 0.0095 ?G/KG, CONTINUING
     Route: 058
     Dates: start: 20170117
  2. REMODULIN [Suspect]
     Active Substance: TREPROSTINIL
     Dosage: 0.015 ?G/KG, Q72H (AT FLOW RATE OF 0.016 ML/ HR)
     Route: 058
     Dates: start: 20170105

REACTIONS (6)
  - Injection site inflammation [Recovering/Resolving]
  - Arthralgia [Unknown]
  - Nausea [Unknown]
  - Pain in jaw [Unknown]
  - Dermatitis contact [Unknown]
  - Injection site pain [Recovering/Resolving]

NARRATIVE: CASE EVENT DATE: 20170131
